FAERS Safety Report 8791773 (Version 2)
Quarter: 2012Q4

REPORT INFORMATION
  Report Type: 
  Country: US (occurrence: US)
  Receive Date: 20120918
  Receipt Date: 20121112
  Transmission Date: 20130627
  Serious: Yes (Hospitalization)
  Sender: FDA-Public Use
  Company Number: US-SHIRE-ALL1-2012-04231

PATIENT
  Age: 10 None
  Sex: Male
  Weight: 48 kg

DRUGS (7)
  1. VYVANSE [Suspect]
     Indication: ATTENTION DEFICIT/HYPERACTIVITY DISORDER
     Dosage: 70 mg, 1x/day:qd
     Route: 048
     Dates: start: 201103
  2. VYVANSE [Suspect]
     Dosage: 30 mg, 1x/day:qd
     Route: 048
  3. ESCITALOPRAM [Concomitant]
     Indication: PRODUCT USED FOR UNKNOWN INDICATION
     Dosage: 20 mg, 1x/day:qd
     Route: 048
     Dates: start: 201103
  4. MONTELUKAST [Concomitant]
     Indication: PRODUCT USED FOR UNKNOWN INDICATION
     Dosage: 5 mg, 1x/day:qd
     Route: 048
  5. GUANFACINE [Concomitant]
     Indication: ATTENTION DEFICIT/HYPERACTIVITY DISORDER
     Dosage: 1 mg, 2x/day:bid
     Route: 048
  6. GUANFACINE [Concomitant]
     Indication: IMPULSIVE BEHAVIOUR
  7. QUETIAPINE [Concomitant]
     Indication: INSOMNIA
     Dosage: 150 mg, 1x/day:qd (qhs)
     Route: 048

REACTIONS (5)
  - Choreoathetosis [Recovered/Resolved]
  - Accidental overdose [Recovered/Resolved]
  - Streptococcal infection [Unknown]
  - Initial insomnia [Unknown]
  - Restlessness [Unknown]
